FAERS Safety Report 12745240 (Version 9)
Quarter: 2019Q1

REPORT INFORMATION
  Report Type: Report from Study
  Country: US (occurrence: US)
  Receive Date: 20160915
  Receipt Date: 20190222
  Transmission Date: 20190417
  Serious: Yes (Death, Hospitalization)
  Sender: FDA-Public Use
  Company Number: US-ACTELION-A-US2016-132418

PATIENT
  Age: 47 Year
  Sex: Male
  Weight: 87.75 kg

DRUGS (6)
  1. VELETRI [Suspect]
     Active Substance: EPOPROSTENOL
     Dosage: 22 NG/KG, PER MIN
     Route: 042
     Dates: start: 20140903
  2. LETAIRIS [Concomitant]
     Active Substance: AMBRISENTAN
  3. VELETRI [Suspect]
     Active Substance: EPOPROSTENOL
     Indication: PULMONARY HYPERTENSION
     Dosage: 18 NG/KG, PER MIN
     Route: 042
     Dates: start: 20140903
  4. VELETRI [Suspect]
     Active Substance: EPOPROSTENOL
     Dosage: 17 NG/KG, PER MIN
     Route: 042
  5. REVATIO [Concomitant]
     Active Substance: SILDENAFIL CITRATE
  6. WARFARIN [Concomitant]
     Active Substance: WARFARIN

REACTIONS (18)
  - Pain in jaw [Not Recovered/Not Resolved]
  - Pain in extremity [Unknown]
  - Haemoptysis [Unknown]
  - Disease progression [Unknown]
  - Dental care [Unknown]
  - Mouth haemorrhage [Unknown]
  - Cardiac failure congestive [Unknown]
  - Ascites [Unknown]
  - Product administration error [Unknown]
  - Loss of consciousness [Unknown]
  - Tooth repair [Unknown]
  - Diarrhoea [Not Recovered/Not Resolved]
  - Lung transplant [Unknown]
  - Death [Fatal]
  - Product dose omission [Unknown]
  - Hospitalisation [Unknown]
  - Fluid retention [Unknown]
  - International normalised ratio increased [Unknown]

NARRATIVE: CASE EVENT DATE: 201602
